FAERS Safety Report 5220651-4 (Version None)
Quarter: 2007Q1

REPORT INFORMATION
  Report Type: 
  Country: None (occurrence: None)
  Receive Date: 20070126
  Receipt Date: 20070112
  Transmission Date: 20070707
  Serious: Yes (Hospitalization)
  Sender: FDA-Public Use
  Company Number: US-JNJFOC-20070103402

PATIENT
  Age: 19 Year
  Sex: Male

DRUGS (1)
  1. FENTANYL [Suspect]
     Indication: INTENTIONAL DRUG MISUSE
     Route: 065

REACTIONS (6)
  - CONVULSION [None]
  - INTENTIONAL DRUG MISUSE [None]
  - OVERDOSE [None]
  - PNEUMONIA [None]
  - RHABDOMYOLYSIS [None]
  - UNRESPONSIVE TO STIMULI [None]
